FAERS Safety Report 9544182 (Version 2)
Quarter: 2013Q4

REPORT INFORMATION
  Report Type: Spontaneous
  Country: US (occurrence: US)
  Receive Date: 20130923
  Receipt Date: 20131003
  Transmission Date: 20140711
  Serious: No
  Sender: FDA-Public Use
  Company Number: US-BAXTER-2013BAX036517

PATIENT
  Age: 50 Year
  Sex: Female

DRUGS (1)
  1. 0.9% SODIUM CHLORIDE INJECTION [Suspect]
     Indication: OCCUPATIONAL EXPOSURE TO PRODUCT
     Route: 061

REACTIONS (3)
  - Device leakage [Unknown]
  - Occupational exposure to product [Unknown]
  - No adverse event [Unknown]
